FAERS Safety Report 16980446 (Version 1)
Quarter: 2019Q4

REPORT INFORMATION
  Report Type: Spontaneous
  Country: GB (occurrence: GB)
  Receive Date: 20191031
  Receipt Date: 20191031
  Transmission Date: 20200122
  Serious: Yes (Other)
  Sender: FDA-Public Use
  Company Number: GB-GLAXOSMITHKLINE-GB2019196063

PATIENT
  Age: 25 Year
  Sex: Female
  Weight: 70 kg

DRUGS (1)
  1. LAMOTRIGINE. [Suspect]
     Active Substance: LAMOTRIGINE
     Indication: BIPOLAR DISORDER
     Dosage: 75 MG, UNK
     Route: 048
     Dates: start: 20171208

REACTIONS (2)
  - Muscular weakness [Recovering/Resolving]
  - Cataplexy [Recovered/Resolved]

NARRATIVE: CASE EVENT DATE: 20171229
